FAERS Safety Report 8603937-2 (Version None)
Quarter: 2012Q3

REPORT INFORMATION
  Report Type: 
  Country: None (occurrence: None)
  Receive Date: 20120820
  Receipt Date: 20120808
  Transmission Date: 20120928
  Serious: Yes (Other)
  Sender: FDA-Public Use
  Company Number: GB-BIOGENIDEC-2012BI013988

PATIENT
  Sex: Male

DRUGS (1)
  1. TYSABRI [Suspect]
     Indication: PRODUCT USED FOR UNKNOWN INDICATION
     Dates: start: 20100301, end: 20120501

REACTIONS (5)
  - COGNITIVE DISORDER [None]
  - REGRESSIVE BEHAVIOUR [None]
  - MEMORY IMPAIRMENT [None]
  - MOBILITY DECREASED [None]
  - DRUG INEFFECTIVE [None]
